FAERS Safety Report 13501779 (Version 1)
Quarter: 2017Q2

REPORT INFORMATION
  Report Type: Spontaneous
  Country: US (occurrence: US)
  Receive Date: 20170502
  Receipt Date: 20170502
  Transmission Date: 20170830
  Serious: Yes (Other)
  Sender: FDA-Public Use
  Company Number: US-ROCHE-1925937

PATIENT
  Age: 40 Year
  Sex: Male

DRUGS (10)
  1. VINCRISTINE [Concomitant]
     Active Substance: VINCRISTINE
     Indication: B-CELL TYPE ACUTE LEUKAEMIA
     Dosage: DAYS 1, 29, 57
     Route: 065
     Dates: start: 20141010
  2. MERCAPTOPURINE. [Concomitant]
     Active Substance: MERCAPTOPURINE
     Indication: B-CELL TYPE ACUTE LEUKAEMIA
     Dosage: 50 MG TABS, 3 TABS
     Route: 065
     Dates: start: 20141010
  3. HYDROCORTISONE. [Concomitant]
     Active Substance: HYDROCORTISONE
     Route: 065
  4. METHOTREXATE. [Concomitant]
     Active Substance: METHOTREXATE
     Indication: B-CELL TYPE ACUTE LEUKAEMIA
     Route: 065
     Dates: start: 20140515
  5. METHOTREXATE. [Concomitant]
     Active Substance: METHOTREXATE
     Dosage: 2.5 MG TABS, 20 TABS
     Route: 048
  6. DEXAMETHASONE. [Concomitant]
     Active Substance: DEXAMETHASONE
     Indication: B-CELL TYPE ACUTE LEUKAEMIA
     Dosage: (6 MG TABS, 2 TABS AM, 1 TAB PM) DIVIDED TWICE A DAY 1-5 MONTHLY
     Route: 065
     Dates: start: 20141010
  7. CYTARABINE. [Concomitant]
     Active Substance: CYTARABINE
     Route: 065
  8. L-ASPARAGINASE [Concomitant]
     Active Substance: ASPARAGINASE
  9. METHOTREXATE. [Concomitant]
     Active Substance: METHOTREXATE
     Dosage: DAY 1 (AND DAY 29 ON THE FIRST 4 CYCLES OF MAINTENANCE).
     Route: 037
  10. RITUXIMAB [Suspect]
     Active Substance: RITUXIMAB
     Indication: B-CELL TYPE ACUTE LEUKAEMIA
     Route: 065
     Dates: start: 20140115

REACTIONS (8)
  - Paraplegia [Unknown]
  - Sepsis [Unknown]
  - Seizure [Unknown]
  - Viral myelitis [Unknown]
  - Device related thrombosis [Unknown]
  - Clostridium difficile colitis [Unknown]
  - Urinary tract infection [Unknown]
  - Ill-defined disorder [Unknown]
